FAERS Safety Report 14674475 (Version 1)
Quarter: 2018Q1

REPORT INFORMATION
  Report Type: Report from Study
  Country: CN (occurrence: CN)
  Receive Date: 20180323
  Receipt Date: 20180323
  Transmission Date: 20180509
  Serious: Yes (Other)
  Sender: FDA-Public Use
  Company Number: CN-GLAXOSMITHKLINE-CN2018048725

PATIENT
  Age: 70 Year
  Sex: Female

DRUGS (4)
  1. TOBRADEX [Concomitant]
     Active Substance: DEXAMETHASONE\TOBRAMYCIN
     Dosage: POSTOPERATIVELY, PATIENT WAS GIVEN TOPICAL DEXAMETHASONE 0.1%-TOBRAMYCIN 0.3% EYEDROPS (TOBRADEX)...
     Route: 061
  2. CEFUROXIME SODIUM. [Suspect]
     Active Substance: CEFUROXIME SODIUM
     Indication: ANTIBIOTIC PROPHYLAXIS
     Dosage: 0.1 ML, UNK, 1 MG/0.1 ML. PATIENT WAS TO RECEIVE 0.1 ML OF THE SECOND SOLUTION OF INTRACAMERAL CEFUR
     Route: 065
  3. DEXAMETHASONE + TOBRAMYCIN [Concomitant]
     Dosage: DEXAMETHASONE 0.1%-TOBRAMYCIN 0.3% OINTMENT AT NIGHT FOR 1 WEEK.
     Route: 065
  4. SODIUM CHLORIDE. [Concomitant]
     Active Substance: SODIUM CHLORIDE
     Dosage: SOLUTION
     Route: 065

REACTIONS (5)
  - Cystoid macular oedema [Recovering/Resolving]
  - Retinal detachment [Recovering/Resolving]
  - Vitreous detachment [Not Recovered/Not Resolved]
  - Retinopathy [Recovering/Resolving]
  - Toxicity to various agents [Recovering/Resolving]
